FAERS Safety Report 8512241-2 (Version None)
Quarter: 2012Q3

REPORT INFORMATION
  Report Type: 
  Country: None (occurrence: None)
  Receive Date: 20120716
  Receipt Date: 20120703
  Transmission Date: 20120928
  Serious: Yes (Other)
  Sender: FDA-Public Use
  Company Number: MX-ROCHE-1086538

PATIENT
  Age: 35 Year
  Sex: Male

DRUGS (9)
  1. MABTHERA [Suspect]
     Indication: CHRONIC GRAFT VERSUS HOST DISEASE
     Dosage: DAYS 4, 11, 18 AND 25
     Route: 042
  2. CYCLOSPORINE [Concomitant]
     Indication: CHRONIC GRAFT VERSUS HOST DISEASE
  3. PREDNISONE [Concomitant]
     Indication: CHRONIC GRAFT VERSUS HOST DISEASE
  4. ACYCLOVIR [Concomitant]
     Indication: INFECTION PROPHYLAXIS
     Dosage: 400 MG DURING TEN DAYS A MONTH
  5. SULFAMETHOXAZOLE AND TRIMETHOPRIM [Concomitant]
     Indication: INFECTION PROPHYLAXIS
     Dosage: EVERY 48 HOURS
  6. ALEMTUZUMAB [Suspect]
     Indication: CHRONIC GRAFT VERSUS HOST DISEASE
     Dosage: 10 MG/DAY/3 DAYS
     Route: 058
  7. ACETAMINOPHEN [Concomitant]
     Indication: PREMEDICATION
  8. FLUCONAZOLE [Concomitant]
     Indication: INFECTION PROPHYLAXIS
  9. CHLORPHENIRAMINE MALEATE [Concomitant]
     Indication: PREMEDICATION

REACTIONS (1)
  - ACUTE PROMYELOCYTIC LEUKAEMIA [None]
